FAERS Safety Report 9009696 (Version 1)
Quarter: 2013Q1

REPORT INFORMATION
  Report Type: Spontaneous
  Country: GB (occurrence: GB)
  Receive Date: 20130112
  Receipt Date: 20130112
  Transmission Date: 20140127
  Serious: Yes (Hospitalization)
  Sender: FDA-Public Use
  Company Number: GB-AMGEN-GBRSP2013001058

PATIENT
  Sex: Female

DRUGS (1)
  1. PROLIA [Suspect]
     Indication: OSTEOPOROSIS POSTMENOPAUSAL
     Dosage: 60 MG, UNK
     Dates: start: 20121224

REACTIONS (11)
  - Dysgeusia [Not Recovered/Not Resolved]
  - Paraesthesia [Not Recovered/Not Resolved]
  - Blood urine present [Recovered/Resolved]
  - Sciatica [Not Recovered/Not Resolved]
  - Urinary incontinence [Unknown]
  - Urine output decreased [Unknown]
  - Local swelling [Unknown]
  - Emotional distress [Unknown]
  - Pain [Unknown]
  - Mobility decreased [Unknown]
  - Vomiting [Unknown]
